FAERS Safety Report 4277163-4 (Version None)
Quarter: 2004Q1

REPORT INFORMATION
  Report Type: 
  Country: None (occurrence: None)
  Receive Date: 20040120
  Receipt Date: 20040109
  Transmission Date: 20041129
  Serious: Yes (Other)
  Sender: FDA-Public Use
  Company Number: FR-JNJFOC-20031203445

PATIENT
  Age: 31 Year
  Sex: Female
  Weight: 75 kg

DRUGS (4)
  1. RISPERDAL [Suspect]
     Indication: BIPOLAR DISORDER
     Dosage: 8 MG, IN 1 DAY ORAL
     Route: 048
     Dates: start: 20031127, end: 20031208
  2. RISPERDAL [Suspect]
     Indication: PERSONALITY DISORDER
     Dosage: 8 MG, IN 1 DAY ORAL
     Route: 048
     Dates: start: 20031127, end: 20031208
  3. DEPAKOTE [Concomitant]
  4. TERCIAN(CYAMEMAZINE) [Concomitant]

REACTIONS (7)
  - LEUKOCYTOSIS [None]
  - MONOCYTOSIS [None]
  - OEDEMA PERIPHERAL [None]
  - PRURITUS [None]
  - PYREXIA [None]
  - RASH [None]
  - RED BLOOD CELL SEDIMENTATION RATE INCREASED [None]
